FAERS Safety Report 6383897-8 (Version None)
Quarter: 2009Q4

REPORT INFORMATION
  Report Type: 
  Country: None (occurrence: None)
  Receive Date: 20091001
  Receipt Date: 20090924
  Transmission Date: 20100525
  Serious: Yes (Hospitalization)
  Sender: FDA-Public Use
  Company Number: US-BAYER-200927961GPV

PATIENT
  Age: 79 Year
  Sex: Male
  Weight: 68 kg

DRUGS (6)
  1. SORAFENIB [Suspect]
     Indication: HEPATIC NEOPLASM MALIGNANT
     Dosage: TOTAL DAILY DOSE: 400 MG
     Route: 048
     Dates: start: 20090610
  2. FAMOTIDINE [Concomitant]
     Indication: PROPHYLAXIS
     Dosage: TOTAL DAILY DOSE: 40 MG
     Dates: start: 20090401
  3. DELGESIC [Concomitant]
     Dates: start: 20090622
  4. SODIUM CHLORIDE [Concomitant]
     Dates: start: 20090622, end: 20090627
  5. OLIVE OIL [Concomitant]
     Indication: DEAFNESS UNILATERAL
     Dates: start: 20090812, end: 20090818
  6. AQUEOUS CREAM (WAX/PARAFFIN/LIQUID/WHITE SOFT PARAFFIN) [Concomitant]
     Indication: PROPHYLAXIS
     Dates: start: 20090812, end: 20090901

REACTIONS (6)
  - BILIARY SEPSIS [None]
  - FATIGUE [None]
  - GLOSSITIS [None]
  - HEPATIC FUNCTION ABNORMAL [None]
  - PYREXIA [None]
  - THROMBOCYTOPENIA [None]
